FAERS Safety Report 13905231 (Version 1)
Quarter: 2017Q3

REPORT INFORMATION
  Report Type: Spontaneous
  Country: US (occurrence: None)
  Receive Date: 20170821
  Receipt Date: 20170821
  Transmission Date: 20171127
  Serious: Yes (Hospitalization)
  Sender: FDA-Public Use
  Company Number: None

PATIENT
  Age: 51 Year
  Sex: Male
  Weight: 78.4 kg

DRUGS (1)
  1. CISPLATIN. [Suspect]
     Active Substance: CISPLATIN
     Dates: end: 20150407

REACTIONS (6)
  - Nausea [None]
  - Toxicity to various agents [None]
  - Dermatitis [None]
  - Mucosal inflammation [None]
  - Febrile neutropenia [None]
  - Fatigue [None]

NARRATIVE: CASE EVENT DATE: 20150412
